FAERS Safety Report 13912058 (Version 1)
Quarter: 2017Q3

REPORT INFORMATION
  Report Type: Spontaneous
  Country: US (occurrence: US)
  Receive Date: 20170828
  Receipt Date: 20170828
  Transmission Date: 20171127
  Serious: No
  Sender: FDA-Public Use
  Company Number: US-ROCHE-GNE299700

PATIENT
  Sex: Male
  Weight: 73.68 kg

DRUGS (2)
  1. NUTROPIN AQ [Suspect]
     Active Substance: SOMATROPIN
     Indication: GROWTH HORMONE DEFICIENCY
     Dosage: 0.39 MG/KG, QD
     Route: 058
     Dates: start: 200806
  2. NUTROPIN AQ [Suspect]
     Active Substance: SOMATROPIN
     Dosage: 3.0 UNIT, QD, DOSE=3 UNIT, DAILY DOSE=3 UNIT
     Route: 065

REACTIONS (2)
  - Bone development abnormal [Unknown]
  - Growth retardation [None]
